FAERS Safety Report 17224263 (Version 1)
Quarter: 2020Q1

REPORT INFORMATION
  Report Type: Spontaneous
  Country: US (occurrence: US)
  Receive Date: 20200102
  Receipt Date: 20200102
  Transmission Date: 20200409
  Serious: Yes (Hospitalization)
  Sender: FDA-Public Use
  Company Number: US-XTTRIUM LABORATORIES, INC-2078419

PATIENT
  Sex: Female

DRUGS (1)
  1. SCRUB CARE EXIDINE -4 CHG [Suspect]
     Active Substance: CHLORHEXIDINE GLUCONATE
     Indication: PRODUCT USED FOR UNKNOWN INDICATION
     Route: 061
     Dates: start: 20191205, end: 20191206

REACTIONS (2)
  - Urticaria [Unknown]
  - Skin irritation [Unknown]

NARRATIVE: CASE EVENT DATE: 20191206
